FAERS Safety Report 17906747 (Version 1)
Quarter: 2020Q2

REPORT INFORMATION
  Report Type: Spontaneous
  Country: AU (occurrence: AU)
  Receive Date: 20200616
  Receipt Date: 20200616
  Transmission Date: 20200714
  Serious: Yes (Life-Threatening, Other)
  Sender: FDA-Public Use
  Company Number: AU-BAXTER-2020BAX012068

PATIENT
  Age: 51 Year
  Sex: Male

DRUGS (3)
  1. SODIUM CHLORIDE (VIAFLO) 250ML [Suspect]
     Active Substance: SODIUM CHLORIDE
     Indication: MEDICATION DILUTION
     Dosage: DILUENT FOR OPDIVO
     Route: 042
     Dates: start: 20200605, end: 20200605
  2. IPILIMUMAB [Suspect]
     Active Substance: IPILIMUMAB
     Indication: METASTATIC MALIGNANT MELANOMA
     Dosage: CYCLE 1 DAY 1
     Route: 065
     Dates: start: 20200605
  3. OPDIVO [Suspect]
     Active Substance: NIVOLUMAB
     Indication: METASTATIC MALIGNANT MELANOMA
     Dosage: CYCLE 1 DAY 1
     Route: 042
     Dates: start: 20200605, end: 20200605

REACTIONS (1)
  - Anaphylactic reaction [Unknown]

NARRATIVE: CASE EVENT DATE: 20200605
